FAERS Safety Report 9812231 (Version 2)
Quarter: 2014Q1

REPORT INFORMATION
  Report Type: Spontaneous
  Country: US (occurrence: US)
  Receive Date: 20140112
  Receipt Date: 20140122
  Transmission Date: 20141002
  Serious: Yes (Other)
  Sender: FDA-Public Use
  Company Number: US-DRREDDYS-USA/USA/14/0037037

PATIENT
  Age: 16 Year
  Sex: Male

DRUGS (2)
  1. ZENATANE [Suspect]
     Indication: ACNE CYSTIC
     Route: 048
     Dates: start: 20131009
  2. ZENATANE [Suspect]
     Route: 048
     Dates: start: 20131106

REACTIONS (2)
  - Mood swings [Recovering/Resolving]
  - Emotional disorder [Recovering/Resolving]
